FAERS Safety Report 20399194 (Version 2)
Quarter: 2022Q1

REPORT INFORMATION
  Report Type: Spontaneous
  Country: US (occurrence: US)
  Receive Date: 20220131
  Receipt Date: 20220201
  Transmission Date: 20220423
  Serious: No
  Sender: FDA-Public Use
  Company Number: US-ABBVIE-21K-163-4043830-00

PATIENT

DRUGS (2)
  1. HUMIRA [Suspect]
     Active Substance: ADALIMUMAB
     Indication: Hidradenitis
     Route: 058
  2. HUMIRA [Suspect]
     Active Substance: ADALIMUMAB
     Route: 058

REACTIONS (7)
  - Fear of injection [Unknown]
  - Anxiety disorder [Unknown]
  - Muscular weakness [Unknown]
  - Muscle contractions involuntary [Unknown]
  - Muscle twitching [Unknown]
  - Hidradenitis [Unknown]
  - Device issue [Unknown]
